FAERS Safety Report 11891906 (Version 2)
Quarter: 2016Q1

REPORT INFORMATION
  Report Type: Spontaneous
  Country: US (occurrence: US)
  Receive Date: 20160106
  Receipt Date: 20160223
  Transmission Date: 20160526
  Serious: Yes (Other)
  Sender: FDA-Public Use
  Company Number: US-CELGENE-USA-2015125877

PATIENT
  Age: 54 Year
  Sex: Male

DRUGS (1)
  1. OTEZLA [Suspect]
     Active Substance: APREMILAST
     Indication: PSORIASIS
     Dosage: 60 MILLIGRAM
     Route: 048
     Dates: start: 20151125

REACTIONS (7)
  - Unevaluable event [Unknown]
  - Drug ineffective [Not Recovered/Not Resolved]
  - Skin exfoliation [Unknown]
  - Skin odour abnormal [Unknown]
  - Burning sensation [Unknown]
  - Onychoclasis [Unknown]
  - Nausea [Not Recovered/Not Resolved]

NARRATIVE: CASE EVENT DATE: 20151125
